FAERS Safety Report 8610272-5 (Version None)
Quarter: 2012Q3

REPORT INFORMATION
  Report Type: 
  Country: None (occurrence: None)
  Receive Date: 20120822
  Receipt Date: 20120811
  Transmission Date: 20120928
  Serious: Yes (Other)
  Sender: FDA-Public Use
  Company Number: PL-PAR PHARMACEUTICAL, INC-2012SCPR004461

PATIENT

DRUGS (2)
  1. CAPTOPRIL [Suspect]
     Indication: HYPERTENSION
     Dosage: 75 MG, QD
     Route: 065
  2. ESTROGEN REPLACEMENT THERAPY [Concomitant]
     Indication: PREMATURE MENOPAUSE
     Dosage: UNK, UNKNOWN
     Route: 065

REACTIONS (2)
  - INSULIN AUTOIMMUNE SYNDROME [None]
  - POLYGLANDULAR AUTOIMMUNE SYNDROME TYPE III [None]
